FAERS Safety Report 5240519-7 (Version None)
Quarter: 2007Q1

REPORT INFORMATION
  Report Type: 
  Country: None (occurrence: None)
  Receive Date: 20070219
  Receipt Date: 20070202
  Transmission Date: 20070707
  Serious: Yes (Other)
  Sender: FDA-Public Use
  Company Number: PT-ROCHE-461012

PATIENT
  Age: 42 Year
  Sex: Male
  Weight: 79 kg

DRUGS (2)
  1. COPEGUS [Suspect]
     Indication: HEPATITIS C
     Route: 048
     Dates: start: 20050615, end: 20060615
  2. PEGASYS [Concomitant]
     Indication: HEPATITIS C
     Route: 058
     Dates: start: 20050615, end: 20060615

REACTIONS (1)
  - ABORTION SPONTANEOUS [None]
